FAERS Safety Report 5939900-X (Version None)
Quarter: 2008Q4

REPORT INFORMATION
  Report Type: 
  Country: None (occurrence: None)
  Receive Date: 20081030
  Receipt Date: 20081030
  Transmission Date: 20090506
  Serious: No
  Sender: FDA-Public Use
  Company Number: None

PATIENT
  Age: 63 Year
  Sex: Male
  Weight: 125.19 kg

DRUGS (1)
  1. SUCRALFATE [Suspect]
     Indication: EROSIVE OESOPHAGITIS
     Dosage: 1 GM QID PO
     Route: 048
     Dates: start: 20081023, end: 20081024

REACTIONS (3)
  - FLUSHING [None]
  - HYPERTENSION [None]
  - OEDEMA PERIPHERAL [None]
